FAERS Safety Report 15209694 (Version 2)
Quarter: 2018Q3

REPORT INFORMATION
  Report Type: Spontaneous
  Country: US (occurrence: US)
  Receive Date: 20180727
  Receipt Date: 20180727
  Transmission Date: 20181010
  Serious: Yes (Hospitalization)
  Sender: FDA-Public Use
  Company Number: US-CELGENEUS-USA-20180706934

PATIENT
  Age: 78 Year
  Sex: Male
  Weight: 66.28 kg

DRUGS (1)
  1. REVLIMID [Suspect]
     Active Substance: LENALIDOMIDE
     Indication: MYELODYSPLASTIC SYNDROME
     Dosage: 10 MILLIGRAM
     Route: 048
     Dates: start: 201803

REACTIONS (2)
  - Thrombosis [Recovered/Resolved]
  - Oesophageal perforation [Recovered/Resolved]

NARRATIVE: CASE EVENT DATE: 20180603
